FAERS Safety Report 10459944 (Version 1)
Quarter: 2014Q3

REPORT INFORMATION
  Report Type: Spontaneous
  Country: BR (occurrence: BR)
  Receive Date: 20140917
  Receipt Date: 20140917
  Transmission Date: 20150326
  Serious: Yes (Other)
  Sender: FDA-Public Use
  Company Number: BR-ABBVIE-14K-020-1283681-00

PATIENT
  Sex: Female

DRUGS (2)
  1. HUMIRA [Suspect]
     Active Substance: ADALIMUMAB
     Indication: ANKYLOSING SPONDYLITIS
     Dates: start: 201204, end: 201408
  2. ANALGESICS [Suspect]
     Active Substance: UNSPECIFIED INGREDIENT
     Indication: HEADACHE

REACTIONS (6)
  - Intracranial pressure increased [Not Recovered/Not Resolved]
  - Empty sella syndrome [Unknown]
  - Optic nerve disorder [Unknown]
  - Vitello-intestinal duct remnant [Unknown]
  - Headache [Unknown]
  - Drug effect incomplete [Unknown]
